FAERS Safety Report 14627378 (Version 1)
Quarter: 2018Q1

REPORT INFORMATION
  Report Type: Other
  Country: US (occurrence: US)
  Receive Date: 20180312
  Receipt Date: 20180312
  Transmission Date: 20180509
  Serious: No
  Sender: FDA-Public Use
  Company Number: US-X-GEN PHARMACEUTICALS, INC-2043533

PATIENT
  Age: 71 Year
  Sex: Male

DRUGS (1)
  1. STREPTOMYCIN [Suspect]
     Active Substance: STREPTOMYCIN\STREPTOMYCIN SULFATE

REACTIONS (2)
  - Weight bearing difficulty [None]
  - Arthralgia [Recovered/Resolved]

NARRATIVE: CASE EVENT DATE: 20171122
